FAERS Safety Report 13509836 (Version 1)
Quarter: 2017Q2

REPORT INFORMATION
  Report Type: Spontaneous
  Country: US (occurrence: US)
  Receive Date: 20170503
  Receipt Date: 20170503
  Transmission Date: 20170830
  Serious: No
  Sender: FDA-Public Use
  Company Number: US-SA-2017SA047155

PATIENT
  Age: 63 Year
  Sex: Female

DRUGS (7)
  1. LEVOTHYROXINE SODIUM. [Concomitant]
     Active Substance: LEVOTHYROXINE SODIUM
  2. ASPIRIN. [Concomitant]
     Active Substance: ASPIRIN
     Dosage: 81 LOW DOSE
  3. PRALUENT [Suspect]
     Active Substance: ALIROCUMAB
     Indication: HYPERCHOLESTEROLAEMIA
     Dosage: DOSE:150 MILLIGRAM(S)/MILLILITRE
     Route: 058
  4. ALIROCUMAB PREFILLED PEN [Concomitant]
     Active Substance: ALIROCUMAB
     Indication: HYPERCHOLESTEROLAEMIA
  5. PANTHENOL/RETINOL/THIAMINE HYDROCHLORIDE/ASCORBIC ACID/ERGOCALCIFEROL/FOLIC ACID/RIBOFLAVIN/NICOTINA [Concomitant]
  6. COQ10 [Concomitant]
     Active Substance: UBIDECARENONE
  7. VITAMIN B COMPLEX [Concomitant]
     Active Substance: CYANOCOBALAMIN\DEXPANTHENOL\NIACINAMIDE\PYRIDOXINE HYDROCHLORIDE\RIBOFLAVIN 5^-PHOSPHATE SODIUM\THIAMINE HYDROCHLORIDE\VITAMIN B COMPLEX

REACTIONS (4)
  - Depressed mood [Recovering/Resolving]
  - Blepharospasm [Unknown]
  - Migraine [Unknown]
  - Arthralgia [Unknown]

NARRATIVE: CASE EVENT DATE: 201612
